FAERS Safety Report 13969486 (Version 2)
Quarter: 2017Q3

REPORT INFORMATION
  Report Type: Spontaneous
  Country: US (occurrence: US)
  Receive Date: 20170914
  Receipt Date: 20170921
  Transmission Date: 20171128
  Serious: No
  Sender: FDA-Public Use
  Company Number: US-GLAXOSMITHKLINE-US2017GSK140594

PATIENT
  Sex: Female

DRUGS (4)
  1. ARNUITY ELLIPTA [Suspect]
     Active Substance: FLUTICASONE FUROATE
     Indication: DYSPNOEA
     Route: 055
  2. BREO ELLIPTA [Suspect]
     Active Substance: FLUTICASONE FUROATE\VILANTEROL TRIFENATATE
     Indication: DYSPNOEA
     Route: 055
  3. TRIAMTERENE. [Concomitant]
     Active Substance: TRIAMTERENE
  4. PROAIR HFA [Concomitant]
     Active Substance: ALBUTEROL SULFATE

REACTIONS (8)
  - Skin disorder [Unknown]
  - Drug ineffective [Unknown]
  - Alopecia [Unknown]
  - Diarrhoea [Recovered/Resolved]
  - Asthenia [Not Recovered/Not Resolved]
  - Dry skin [Unknown]
  - Gastrointestinal disorder [Recovered/Resolved]
  - Hair colour changes [Unknown]
